FAERS Safety Report 14586046 (Version 1)
Quarter: 2018Q1

REPORT INFORMATION
  Report Type: Spontaneous
  Country: US (occurrence: US)
  Receive Date: 20180228
  Receipt Date: 20180228
  Transmission Date: 20180509
  Serious: Yes (Hospitalization)
  Sender: FDA-Public Use
  Company Number: None

PATIENT
  Age: 44 Year
  Sex: Male
  Weight: 99.6 kg

DRUGS (10)
  1. CISPLATIN. [Suspect]
     Active Substance: CISPLATIN
     Dates: end: 20180131
  2. FENTANYL. [Concomitant]
     Active Substance: FENTANYL
  3. PROCHLORPERAZINE. [Concomitant]
     Active Substance: PROCHLORPERAZINE
  4. DEXAMETHASONE. [Concomitant]
     Active Substance: DEXAMETHASONE
  5. SINUS WASH [Concomitant]
     Active Substance: SODIUM BICARBONATE\SODIUM CHLORIDE
  6. FAMOTIDINE. [Concomitant]
     Active Substance: FAMOTIDINE
  7. OXYCODONE [Concomitant]
     Active Substance: OXYCODONE
  8. LISINOPRIL. [Concomitant]
     Active Substance: LISINOPRIL
  9. MAGIC MOUTHWASH [Concomitant]
     Active Substance: DIPHENHYDRAMINE HYDROCHLORIDE\LIDOCAINE HYDROCHLORIDE\NYSTATIN
  10. NICOTINE. [Concomitant]
     Active Substance: NICOTINE

REACTIONS (12)
  - Oropharyngeal pain [None]
  - Mucosal inflammation [None]
  - Acute kidney injury [None]
  - Dysphagia [None]
  - Energy increased [None]
  - Hypophagia [None]
  - Sinus tachycardia [None]
  - Dehydration [None]
  - Dizziness [None]
  - Hyperhidrosis [None]
  - Oral pain [None]
  - Hypotension [None]

NARRATIVE: CASE EVENT DATE: 20180207
